FAERS Safety Report 9462165 (Version 2)
Quarter: 2013Q3

REPORT INFORMATION
  Report Type: Report from Study
  Country: VE (occurrence: VE)
  Receive Date: 20130816
  Receipt Date: 20130920
  Transmission Date: 20140515
  Serious: Yes (Death)
  Sender: FDA-Public Use
  Company Number: PHHY2013VE088240

PATIENT
  Age: 75 Year
  Sex: Female

DRUGS (3)
  1. AFINITOR [Suspect]
     Indication: BREAST CANCER
     Dosage: 10 MG, DAILY
     Route: 048
     Dates: start: 201303
  2. BONDRONAT [Concomitant]
     Indication: BONE CANCER
     Dosage: 1 DF, QMO
  3. AROMASIN [Concomitant]
     Indication: BREAST CANCER
     Dosage: 1 DF, DAILY
     Route: 048

REACTIONS (1)
  - Myocardial infarction [Fatal]
